FAERS Safety Report 4876733-X (Version None)
Quarter: 2006Q1

REPORT INFORMATION
  Report Type: 
  Country: None (occurrence: None)
  Receive Date: 20060110
  Receipt Date: 20051213
  Transmission Date: 20060701
  Serious: Yes (Hospitalization, Other)
  Sender: FDA-Public Use
  Company Number: US-MERCK-0512USA02090

PATIENT
  Age: 65 Year
  Sex: Female
  Weight: 83 kg

DRUGS (8)
  1. VIOXX [Suspect]
     Indication: ARTHRITIS
     Route: 048
     Dates: start: 20020101, end: 20040401
  2. VIOXX [Suspect]
     Route: 048
     Dates: start: 20020101, end: 20040401
  3. ENALAPRIL MALEATE [Concomitant]
     Route: 065
  4. PROPRANOLOL HYDROCHLORIDE [Concomitant]
     Route: 065
  5. VERAPAMIL [Concomitant]
     Route: 065
  6. DIPYRIDAMOLE [Concomitant]
     Route: 065
  7. PREDNISONE [Concomitant]
     Route: 065
  8. ANACIN [Concomitant]
     Route: 065

REACTIONS (7)
  - ABDOMINAL PAIN [None]
  - CONSTIPATION [None]
  - MYALGIA [None]
  - OEDEMA PERIPHERAL [None]
  - OVERDOSE [None]
  - PULMONARY EMBOLISM [None]
  - THROMBOSIS [None]
